FAERS Safety Report 7768190-0 (Version None)
Quarter: 2011Q3

REPORT INFORMATION
  Report Type: 
  Country: None (occurrence: None)
  Receive Date: 20110922
  Receipt Date: 20110922
  Transmission Date: 20111222
  Serious: Yes (Death)
  Sender: FDA-Public Use
  Company Number: None

PATIENT
  Age: 78 Year
  Sex: Male
  Weight: 53.523 kg

DRUGS (1)
  1. VITAMIN D [Suspect]
     Indication: VITAMIN D DECREASED
     Dosage: 1
     Route: 048
     Dates: start: 20110219, end: 20110219

REACTIONS (2)
  - GASTRIC MUCOSAL HYPERTROPHY [None]
  - GENERAL PHYSICAL HEALTH DETERIORATION [None]
